FAERS Safety Report 4709047-9 (Version None)
Quarter: 2005Q3

REPORT INFORMATION
  Report Type: 
  Country: None (occurrence: None)
  Receive Date: 20050707
  Receipt Date: 20050621
  Transmission Date: 20060218
  Serious: Yes (Hospitalization)
  Sender: FDA-Public Use
  Company Number: 2005094169

PATIENT
  Sex: Female

DRUGS (3)
  1. VIAGRA [Suspect]
     Indication: GASTROOESOPHAGEAL REFLUX DISEASE
     Dosage: (50 MG), ORAL
     Route: 048
  2. VIAGRA [Suspect]
     Indication: HYPOTONIA
     Dosage: (50 MG), ORAL
     Route: 048
  3. VIAGRA [Suspect]
     Indication: PULMONARY HYPERTENSION
     Dosage: (50 MG), ORAL
     Route: 048

REACTIONS (2)
  - INTENTIONAL MISUSE [None]
  - TREATMENT NONCOMPLIANCE [None]
